FAERS Safety Report 7358852-1 (Version None)
Quarter: 2011Q1

REPORT INFORMATION
  Report Type: 
  Country: None (occurrence: None)
  Receive Date: 20110317
  Receipt Date: 20110307
  Transmission Date: 20110831
  Serious: Yes (Hospitalization)
  Sender: FDA-Public Use
  Company Number: B0704271A

PATIENT
  Sex: Male

DRUGS (5)
  1. ZOPHREN [Suspect]
     Indication: PREMEDICATION
     Dosage: 8MG SINGLE DOSE
     Route: 042
     Dates: start: 20110207, end: 20110207
  2. CISPLATIN [Suspect]
     Indication: PLEURAL MESOTHELIOMA
     Dosage: 140MG SINGLE DOSE
     Route: 042
     Dates: start: 20110207, end: 20110207
  3. PRIMPERAN TAB [Concomitant]
     Indication: PREMEDICATION
     Route: 065
  4. PEMETREXED [Suspect]
     Indication: PLEURAL MESOTHELIOMA
     Dosage: 900MG SINGLE DOSE
     Route: 042
     Dates: start: 20110207, end: 20110207
  5. METHYLPREDNISOLONE [Concomitant]
     Indication: PREMEDICATION
     Route: 065

REACTIONS (2)
  - TOXIC SKIN ERUPTION [None]
  - RASH GENERALISED [None]
